FAERS Safety Report 5961537-7 (Version None)
Quarter: 2008Q4

REPORT INFORMATION
  Report Type: 
  Country: None (occurrence: None)
  Receive Date: 20081121
  Receipt Date: 20081114
  Transmission Date: 20090506
  Serious: Yes (Death)
  Sender: FDA-Public Use
  Company Number: A0757224A

PATIENT
  Age: 78 Year
  Sex: Male
  Weight: 87 kg

DRUGS (6)
  1. SERETIDE [Suspect]
     Indication: PULMONARY FIBROSIS
     Dates: start: 20081009, end: 20081028
  2. MARCUMAR [Concomitant]
     Dates: start: 20020101, end: 20081028
  3. BETAHISTINE [Concomitant]
     Dates: start: 20061001, end: 20081028
  4. AMIODARONE HCL [Concomitant]
     Dates: start: 20020101, end: 20081028
  5. BAMIFIX [Concomitant]
     Dosage: 600MG THREE TIMES PER DAY
     Dates: start: 20081009, end: 20081028
  6. PRELONE [Concomitant]
     Dates: start: 20081013, end: 20081028

REACTIONS (3)
  - CHRONIC OBSTRUCTIVE PULMONARY DISEASE [None]
  - RESPIRATORY FAILURE [None]
  - SEPTIC SHOCK [None]
